FAERS Safety Report 6041768-0 (Version None)
Quarter: 2009Q1

REPORT INFORMATION
  Report Type: 
  Country: None (occurrence: None)
  Receive Date: 20090116
  Receipt Date: 20090107
  Transmission Date: 20090719
  Serious: Yes (Other)
  Sender: FDA-Public Use
  Company Number: CN-PFIZER INC-2009155658

PATIENT

DRUGS (3)
  1. SULPERAZON [Suspect]
     Indication: LUNG INFECTION
     Dosage: 1.5 G, 2X/DAY
     Route: 042
     Dates: start: 20090105, end: 20090105
  2. GENERAL NUTRIENTS [Concomitant]
     Route: 042
  3. MULTI-VITAMINS [Concomitant]
     Route: 042

REACTIONS (1)
  - INFUSION RELATED REACTION [None]
